FAERS Safety Report 7426219-3 (Version None)
Quarter: 2011Q2

REPORT INFORMATION
  Report Type: 
  Country: None (occurrence: None)
  Receive Date: 20110420
  Receipt Date: 20100303
  Transmission Date: 20111010
  Serious: Yes (Hospitalization)
  Sender: FDA-Public Use
  Company Number: A0849330A

PATIENT
  Age: 56 Year
  Sex: Male

DRUGS (2)
  1. AVANDIA [Suspect]
     Indication: DIABETES MELLITUS
     Route: 048
     Dates: start: 20050407, end: 20060508
  2. AVANDAMET [Suspect]
     Route: 048
     Dates: start: 20040116, end: 20041210

REACTIONS (5)
  - CEREBROVASCULAR ACCIDENT [None]
  - PAIN IN EXTREMITY [None]
  - HEADACHE [None]
  - DIZZINESS [None]
  - CARDIAC DISORDER [None]
